FAERS Safety Report 14379488 (Version 1)
Quarter: 2018Q1

REPORT INFORMATION
  Report Type: Report from Study
  Country: US (occurrence: US)
  Receive Date: 20180112
  Receipt Date: 20180112
  Transmission Date: 20180509
  Serious: No
  Sender: FDA-Public Use
  Company Number: PHEH2018US001154

PATIENT
  Age: 47 Year

DRUGS (2)
  1. COSENTYX [Suspect]
     Active Substance: SECUKINUMAB
     Indication: ANKYLOSING SPONDYLITIS
     Dosage: 150 MG, QW
     Route: 058
  2. COSENTYX [Suspect]
     Active Substance: SECUKINUMAB
     Dosage: 150 MG, QW (FIFTH DOSE)
     Route: 058
     Dates: start: 20180104

REACTIONS (4)
  - Lacrimation increased [Unknown]
  - Eye allergy [Recovered/Resolved]
  - Eye swelling [Unknown]
  - Limb injury [Unknown]

NARRATIVE: CASE EVENT DATE: 20171226
